FAERS Safety Report 6682565-2 (Version None)
Quarter: 2010Q2

REPORT INFORMATION
  Report Type: 
  Country: None (occurrence: None)
  Receive Date: 20100415
  Receipt Date: 20100401
  Transmission Date: 20101027
  Serious: Yes (Other)
  Sender: FDA-Public Use
  Company Number: PHEH2006US08864

PATIENT
  Sex: Male

DRUGS (16)
  1. ZOMETA [Suspect]
     Dosage: UNK
     Dates: start: 20030101
  2. VINCRISTINE [Concomitant]
     Dosage: UNK
     Dates: start: 20030101
  3. ADRIAMYCIN PFS [Concomitant]
     Dosage: UNK
     Dates: start: 20030101
  4. DEXAMETHASONE ^KRKA^ [Concomitant]
     Dosage: UNK
     Dates: start: 20030101
  5. CARDIZEM [Concomitant]
     Dosage: UNK
  6. COUMADIN [Concomitant]
  7. THALIDOMIDE [Concomitant]
     Dosage: UNK
  8. NEURONTIN [Concomitant]
  9. VIOXX [Concomitant]
  10. HYDROCODONE BITARTRATE [Concomitant]
  11. PROTONIX [Concomitant]
  12. GEMFIBROZIL [Concomitant]
  13. AVELOX [Concomitant]
  14. IBUPROFEN [Concomitant]
     Dosage: 800 MG, TID
  15. CHLORTHALIDONE [Concomitant]
     Dosage: 25 MG QD
  16. PROCRIT                            /00909301/ [Concomitant]

REACTIONS (27)
  - ACTINOMYCOSIS [None]
  - AMNESIA [None]
  - ANXIETY [None]
  - ARTHRALGIA [None]
  - ATRIAL FIBRILLATION [None]
  - BALANCE DISORDER [None]
  - BONE OPERATION [None]
  - CATHETERISATION CARDIAC [None]
  - DEBRIDEMENT [None]
  - DENTAL CARIES [None]
  - DENTAL FISTULA [None]
  - FLUSHING [None]
  - INJURY [None]
  - OEDEMA PERIPHERAL [None]
  - OPEN WOUND [None]
  - OSTEOARTHRITIS [None]
  - OSTEOMYELITIS [None]
  - OSTEONECROSIS [None]
  - PAIN [None]
  - PAIN IN JAW [None]
  - PERIODONTITIS [None]
  - SINUS TACHYCARDIA [None]
  - SINUSITIS [None]
  - TOOTH DISORDER [None]
  - TOOTH EXTRACTION [None]
  - TOOTH IMPACTED [None]
  - VISUAL ACUITY REDUCED [None]
